FAERS Safety Report 7908974-9 (Version None)
Quarter: 2011Q4

REPORT INFORMATION
  Report Type: 
  Country: None (occurrence: None)
  Receive Date: 20111108
  Receipt Date: 20111026
  Transmission Date: 20120403
  Serious: Yes (Hospitalization, Other)
  Sender: FDA-Public Use
  Company Number: 2011SP050037

PATIENT
  Age: 65 Year
  Sex: Male

DRUGS (3)
  1. AVASTIN [Concomitant]
  2. TEMODAL [Suspect]
     Indication: GLIOBLASTOMA
     Dates: start: 20110314, end: 20110926
  3. TEMODAL [Suspect]
     Indication: GLIOBLASTOMA
     Dates: start: 20110204

REACTIONS (7)
  - GLIOBLASTOMA [None]
  - HEADACHE [None]
  - CACHEXIA [None]
  - AGEUSIA [None]
  - SENSORY LOSS [None]
  - DECREASED APPETITE [None]
  - CONDITION AGGRAVATED [None]
